FAERS Safety Report 5633142-3 (Version None)
Quarter: 2008Q1

REPORT INFORMATION
  Report Type: 
  Country: None (occurrence: None)
  Receive Date: 20080221
  Receipt Date: 20080212
  Transmission Date: 20080703
  Serious: Yes (Other)
  Sender: FDA-Public Use
  Company Number: US-ROCHE-541213

PATIENT
  Age: 54 Year
  Sex: Female

DRUGS (2)
  1. PEG-INTERFERON A-2A (RO 25-8310) [Suspect]
     Dosage: FORM: PRE-FILLED SYRINGE (PFS)
     Route: 065
     Dates: start: 20070112, end: 20071207
  2. RIBAVIRIN [Suspect]
     Route: 065
     Dates: start: 20070112, end: 20071207

REACTIONS (2)
  - DEHYDRATION [None]
  - HYPERTHYROIDISM [None]
